FAERS Safety Report 6235093-2 (Version None)
Quarter: 2009Q2

REPORT INFORMATION
  Report Type: 
  Country: None (occurrence: None)
  Receive Date: 20090615
  Receipt Date: 20090608
  Transmission Date: 20091009
  Serious: Yes (Hospitalization)
  Sender: FDA-Public Use
  Company Number: URSO-2009-065 FUP #1

PATIENT
  Age: 44 Year
  Sex: Male

DRUGS (1)
  1. URSO 250 [Suspect]
     Dosage: ORAL
     Route: 048

REACTIONS (1)
  - HEPATITIS ACUTE [None]
